FAERS Safety Report 18986162 (Version 1)
Quarter: 2021Q1

REPORT INFORMATION
  Report Type: Spontaneous
  Country: US (occurrence: US)
  Receive Date: 20210305
  Receipt Date: 20210305
  Transmission Date: 20210420
  Serious: No
  Sender: FDA-Public Use
  Company Number: None

PATIENT
  Age: 73 Year
  Sex: Male

DRUGS (10)
  1. WARFARIN [Concomitant]
     Active Substance: WARFARIN
  2. CARVEDILOL. [Concomitant]
     Active Substance: CARVEDILOL
  3. RIOCIGUAT. [Suspect]
     Active Substance: RIOCIGUAT
  4. ATORVASTATIN [Concomitant]
     Active Substance: ATORVASTATIN
  5. OPSUMIT [Suspect]
     Active Substance: MACITENTAN
     Indication: PULMONARY HYPERTENSION
     Route: 048
     Dates: start: 20201020, end: 202101
  6. ASPIRIN. [Concomitant]
     Active Substance: ASPIRIN
  7. OXYCODONE [Concomitant]
     Active Substance: OXYCODONE
  8. COLCHICINE. [Concomitant]
     Active Substance: COLCHICINE
  9. ACETAMINOPHEN. [Concomitant]
     Active Substance: ACETAMINOPHEN
  10. SENNA LAXATIVE [Concomitant]
     Active Substance: SENNOSIDES

REACTIONS (4)
  - Gastrooesophageal reflux disease [None]
  - Inability to afford medication [None]
  - Drug intolerance [None]
  - Therapy interrupted [None]

NARRATIVE: CASE EVENT DATE: 20210304
